FAERS Safety Report 7005386-X (Version None)
Quarter: 2010Q3

REPORT INFORMATION
  Report Type: 
  Country: None (occurrence: None)
  Receive Date: 20100921
  Receipt Date: 20100916
  Transmission Date: 20110219
  Serious: Yes (Death, Hospitalization, Other)
  Sender: FDA-Public Use
  Company Number: ES-ROCHE-713019

PATIENT
  Sex: Male
  Weight: 80 kg

DRUGS (3)
  1. BEVACIZUMAB [Suspect]
     Indication: NON-SMALL CELL LUNG CANCER
     Dosage: FORM: UNKNOWN, FREQUENCY: TAKEN FROM PROTOCOL, PERMANENTLY DISCONTINUED. LAST DOSE: 17 JUN 2010
     Route: 042
     Dates: start: 20100527, end: 20100701
  2. PEMETREXED [Suspect]
     Indication: NON-SMALL CELL LUNG CANCER
     Dosage: LAST DOSE PRIOR TO SAE: 17 JUNE 2010, FORM: UNKNOWN, PERMANENTLY DISCONTINUED.
     Route: 042
     Dates: start: 20100527, end: 20100701
  3. CISPLATIN [Suspect]
     Indication: NON-SMALL CELL LUNG CANCER
     Dosage: FORM: UNKNOWN, PERMANENTLY DISCONTINUED. LAST DOSE PRIOR TO SAE: 17 JUNE 2010
     Route: 042
     Dates: start: 20100527, end: 20100701

REACTIONS (4)
  - DIARRHOEA [None]
  - MUCOSAL INFLAMMATION [None]
  - NEUTROPENIA [None]
  - RENAL FAILURE [None]
